FAERS Safety Report 9179289 (Version 2)
Quarter: 2015Q4

REPORT INFORMATION
  Report Type: Spontaneous
  Country: US (occurrence: US)
  Receive Date: 20130321
  Receipt Date: 20151002
  Transmission Date: 20160305
  Serious: Yes (Other)
  Sender: FDA-Public Use
  Company Number: US-LUNDBECK-DKLU1089689

PATIENT
  Age: 12 Month
  Sex: Male

DRUGS (4)
  1. SABRIL [Suspect]
     Active Substance: VIGABATRIN
     Dosage: PM
     Route: 065
     Dates: end: 20140702
  2. TOPIRAMATE. [Concomitant]
     Active Substance: TOPIRAMATE
     Indication: PRODUCT USED FOR UNKNOWN INDICATION
     Route: 065
     Dates: start: 201210
  3. SABRIL [Suspect]
     Active Substance: VIGABATRIN
     Indication: INFANTILE SPASMS
     Route: 065
     Dates: start: 201212
  4. SABRIL [Suspect]
     Active Substance: VIGABATRIN
     Dosage: AM
     Route: 065
     Dates: end: 20140702

REACTIONS (1)
  - Ophthalmological examination abnormal [Unknown]

NARRATIVE: CASE EVENT DATE: 20130204
